FAERS Safety Report 4379786-0 (Version None)
Quarter: 2004Q2

REPORT INFORMATION
  Report Type: 
  Country: None (occurrence: None)
  Receive Date: 20040614
  Receipt Date: 20040528
  Transmission Date: 20050107
  Serious: Yes (Hospitalization, Other)
  Sender: FDA-Public Use
  Company Number: 198984

PATIENT
  Sex: Female

DRUGS (1)
  1. AVONEX ^BIOGEN^ [Suspect]
     Indication: MULTIPLE SCLEROSIS

REACTIONS (2)
  - KNEE ARTHROPLASTY [None]
  - THYROID GLAND CANCER [None]
